FAERS Safety Report 9691188 (Version 1)
Quarter: 2013Q4

REPORT INFORMATION
  Report Type: Spontaneous
  Country: US (occurrence: US)
  Receive Date: 20131115
  Receipt Date: 20131115
  Transmission Date: 20140711
  Serious: Yes (Other)
  Sender: FDA-Public Use
  Company Number: US-PFIZER INC-2013325634

PATIENT
  Age: 60 Year
  Sex: Female

DRUGS (4)
  1. HEPARIN SODIUM [Suspect]
     Indication: VENOUS THROMBOSIS
     Dosage: UNK
     Route: 042
  2. HEPARIN SODIUM [Suspect]
     Indication: PULMONARY EMBOLISM
  3. WARFARIN [Concomitant]
     Indication: VENOUS THROMBOSIS
     Dosage: UNK
  4. WARFARIN [Concomitant]
     Indication: PULMONARY EMBOLISM

REACTIONS (4)
  - Heparin-induced thrombocytopenia [Not Recovered/Not Resolved]
  - Deep vein thrombosis [Not Recovered/Not Resolved]
  - Gangrene [Not Recovered/Not Resolved]
  - Renal failure acute [Unknown]
